FAERS Safety Report 23511581 (Version 1)
Quarter: 2024Q1

REPORT INFORMATION
  Report Type: Report from Study
  Country: CA (occurrence: CA)
  Receive Date: 20240212
  Receipt Date: 20240212
  Transmission Date: 20240409
  Serious: Yes (Other)
  Sender: FDA-Public Use
  Company Number: CA-TAKEDA-2024TUS012266

PATIENT
  Sex: Female

DRUGS (6)
  1. VEDOLIZUMAB [Suspect]
     Active Substance: VEDOLIZUMAB
     Indication: Crohn^s disease
     Dosage: 300 MILLIGRAM
     Route: 042
     Dates: start: 20200406
  2. ASACOL [Concomitant]
     Active Substance: MESALAMINE
     Dosage: 2.4 GRAM, BID
     Dates: start: 20190506
  3. IMODIUM [Concomitant]
     Active Substance: LOPERAMIDE HYDROCHLORIDE
     Dosage: UNK, UNK, 1/WEEK
  4. KISQALI [Concomitant]
     Active Substance: RIBOCICLIB
     Dosage: UNK
  5. RIBOCICLIB [Concomitant]
     Active Substance: RIBOCICLIB
     Dosage: 600 MILLIGRAM
     Route: 048
     Dates: start: 20240201
  6. LETROZOLE [Concomitant]
     Active Substance: LETROZOLE
     Dosage: 2.5 MILLIGRAM
     Route: 048
     Dates: start: 20240203

REACTIONS (1)
  - Lung neoplasm malignant [Unknown]
